FAERS Safety Report 10028994 (Version 2)
Quarter: 2014Q2

REPORT INFORMATION
  Report Type: Report from Study
  Country: NL (occurrence: NL)
  Receive Date: 20140321
  Receipt Date: 20140429
  Transmission Date: 20141212
  Serious: Yes (Other)
  Sender: FDA-Public Use
  Company Number: NL-CELGENEUS-114-21880-14031540

PATIENT
  Age: 84 Year
  Sex: Male

DRUGS (3)
  1. REVLIMID [Suspect]
     Indication: PLASMA CELL MYELOMA
     Route: 048
     Dates: start: 20120218, end: 20131216
  2. FUROSEMIDE [Concomitant]
     Indication: OEDEMA
     Route: 048
     Dates: start: 20121009
  3. SERETIDE [Concomitant]
     Indication: DYSPNOEA
     Dosage: 20/250
     Route: 055
     Dates: start: 20130407

REACTIONS (1)
  - Basal cell carcinoma [Recovered/Resolved]
